FAERS Safety Report 19971506 (Version 1)
Quarter: 2021Q4

REPORT INFORMATION
  Report Type: Spontaneous
  Country: AR (occurrence: AR)
  Receive Date: 20211020
  Receipt Date: 20211020
  Transmission Date: 20220303
  Serious: Yes (Hospitalization, Other)
  Sender: FDA-Public Use
  Company Number: ALC2021AR005499

PATIENT
  Age: 69 Year
  Sex: Female

DRUGS (4)
  1. SIMBRINZA [Suspect]
     Active Substance: BRIMONIDINE TARTRATE\BRINZOLAMIDE
     Indication: Glaucoma
     Dosage: 10 ML, QD (2 OF 5 ML EVERY EVERY DAY IN EACH EYE);
     Route: 065
  2. TIMOLOL MALEATE\TRAVOPROST [Suspect]
     Active Substance: TIMOLOL MALEATE\TRAVOPROST
     Indication: Glaucoma
     Dosage: 10 MG, QD (2 OF 5 MG EVERY DAY IN EACH EYE);
     Route: 065
     Dates: end: 20210601
  3. TIMOLOL MALEATE\TRAVOPROST [Suspect]
     Active Substance: TIMOLOL MALEATE\TRAVOPROST
     Dosage: 10 MG, QD (2 OF 5 MG EVERY DAY IN EACH EYE);
     Route: 065
     Dates: end: 20210623
  4. ACECLIDINE [Suspect]
     Active Substance: ACECLIDINE
     Indication: Product used for unknown indication
     Route: 065

REACTIONS (5)
  - Breast cancer [Unknown]
  - Arterial rupture [Unknown]
  - Wound contamination [Unknown]
  - Wound [Unknown]
  - Intraocular pressure increased [Unknown]

NARRATIVE: CASE EVENT DATE: 20150901
